FAERS Safety Report 9192274 (Version 1)
Quarter: 2013Q1

REPORT INFORMATION
  Report Type: Spontaneous
  Country: US (occurrence: US)
  Receive Date: 20130327
  Receipt Date: 20130327
  Transmission Date: 20140127
  Serious: Yes (Other)
  Sender: FDA-Public Use
  Company Number: US-ELI_LILLY_AND_COMPANY-US201303006128

PATIENT
  Sex: Female

DRUGS (3)
  1. CYMBALTA [Suspect]
     Dosage: 30 MG, QD
  2. CYMBALTA [Suspect]
     Dosage: 30 MG, QOD
  3. CYMBALTA [Suspect]
     Dosage: 30 MG, QD

REACTIONS (6)
  - Homicidal ideation [Recovering/Resolving]
  - Drug withdrawal syndrome [Recovering/Resolving]
  - Nausea [Recovering/Resolving]
  - Dizziness [Recovering/Resolving]
  - Irritability [Recovering/Resolving]
  - Stress [Recovering/Resolving]
